FAERS Safety Report 5410468-X (Version None)
Quarter: 2007Q3

REPORT INFORMATION
  Report Type: 
  Country: None (occurrence: None)
  Receive Date: 20070810
  Receipt Date: 20061227
  Transmission Date: 20080115
  Serious: No
  Sender: FDA-Public Use
  Company Number: A0633270A

PATIENT
  Sex: Female

DRUGS (1)
  1. PAXIL [Suspect]

REACTIONS (4)
  - ANXIETY [None]
  - DIZZINESS [None]
  - NAUSEA [None]
  - POOR QUALITY SLEEP [None]
